FAERS Safety Report 4323703-6 (Version None)
Quarter: 2004Q1

REPORT INFORMATION
  Report Type: 
  Country: None (occurrence: None)
  Receive Date: 20040323
  Receipt Date: 20040308
  Transmission Date: 20041129
  Serious: Yes (Death, Life-Threatening, Hospitalization)
  Sender: FDA-Public Use
  Company Number: 2003AP03485

PATIENT
  Age: 52 Year
  Sex: Female

DRUGS (15)
  1. IRESSA [Suspect]
     Indication: SMALL CELL LUNG CANCER STAGE UNSPECIFIED
     Dosage: 250 MG DAILY PO
     Route: 048
     Dates: start: 20030908, end: 20030912
  2. URSO [Concomitant]
  3. LENDORM [Concomitant]
  4. MEDICON [Concomitant]
  5. GASTER [Concomitant]
  6. STAYBAN [Concomitant]
  7. LOXONIN [Concomitant]
  8. KELNAC [Concomitant]
  9. CINAL [Concomitant]
  10. ADONA [Concomitant]
  11. YODEL [Concomitant]
  12. BERIZYM [Concomitant]
  13. NAUZELIN [Concomitant]
  14. MORPHINE [Concomitant]
  15. RADIOTHERAPY [Concomitant]

REACTIONS (4)
  - CONDITION AGGRAVATED [None]
  - INTERSTITIAL LUNG DISEASE [None]
  - LIVER FUNCTION TEST ABNORMAL [None]
  - NON-SMALL CELL LUNG CANCER [None]
